FAERS Safety Report 4554641-1 (Version None)
Quarter: 2005Q1

REPORT INFORMATION
  Report Type: 
  Country: None (occurrence: None)
  Receive Date: 20041227
  Receipt Date: 20040915
  Transmission Date: 20050727
  Serious: No
  Sender: FDA-Public Use
  Company Number: US086912

PATIENT
  Age: 58 Year
  Sex: Male

DRUGS (16)
  1. SENSIPAR [Suspect]
     Indication: HYPERPARATHYROIDISM SECONDARY
     Dosage: 30 MG, 1 IN 1 DAYS, PO
     Route: 048
     Dates: start: 20040701, end: 20040809
  2. DOXERCALCEROL [Concomitant]
  3. SEVELAMER HCL [Concomitant]
  4. VENOFER [Concomitant]
  5. EPOGEN [Concomitant]
  6. ESOMEPRAZOLE MAGNESIUM [Concomitant]
  7. ACETYLSALICYLIC ACID SRT [Concomitant]
  8. ATORVASTATIN CALCIUM [Concomitant]
  9. CLONAZEPAM [Concomitant]
  10. METOPROLOL SUCCINATE [Concomitant]
  11. ALLOPURINOL [Concomitant]
  12. FUROSEMIDE [Concomitant]
  13. TAMSULOSIN HCL [Concomitant]
  14. NEPHRO-VITE [Concomitant]
  15. FEXOFENADINE HYDROCHLORIDE [Concomitant]
  16. DOCUSATE [Concomitant]

REACTIONS (2)
  - BLOOD PARATHYROID HORMONE INCREASED [None]
  - RASH ERYTHEMATOUS [None]
